FAERS Safety Report 9117965 (Version 2)
Quarter: 2013Q1

REPORT INFORMATION
  Report Type: Spontaneous
  Country: US (occurrence: US)
  Receive Date: 20130226
  Receipt Date: 20130307
  Transmission Date: 20140127
  Serious: Yes (Hospitalization)
  Sender: FDA-Public Use
  Company Number: US-AMGEN-USASP2013010110

PATIENT
  Age: 53 Year
  Sex: Female
  Weight: 74.38 kg

DRUGS (2)
  1. ENBREL [Suspect]
     Indication: PRODUCT USED FOR UNKNOWN INDICATION
     Dosage: 50 MG, QWK
     Route: 058
     Dates: start: 20120904
  2. METHOTREXATE [Concomitant]
     Dosage: 2.5 MG, 8 QWK
     Route: 048
     Dates: start: 20120328

REACTIONS (1)
  - Lung infection [Recovered/Resolved]
